FAERS Safety Report 4964376-9 (Version None)
Quarter: 2006Q2

REPORT INFORMATION
  Report Type: 
  Country: None (occurrence: None)
  Receive Date: 20060406
  Receipt Date: 20060224
  Transmission Date: 20061013
  Serious: Yes (Other)
  Sender: FDA-Public Use
  Company Number: JP-ROCHE-438288

PATIENT
  Age: 80 Year
  Sex: Female
  Weight: 52 kg

DRUGS (7)
  1. TAMIFLU [Suspect]
     Route: 048
     Dates: start: 20060217, end: 20060221
  2. OMEPRAZOLE [Suspect]
     Indication: REFLUX OESOPHAGITIS
     Route: 048
     Dates: start: 20050805
  3. LANDEL [Suspect]
     Indication: HYPERTENSION
     Route: 048
     Dates: start: 20050805
  4. PRIMPERAN TAB [Suspect]
     Indication: GASTRITIS
     Route: 048
     Dates: start: 20050913
  5. OLMETEC [Concomitant]
     Route: 048
     Dates: start: 20050805
  6. ALDACTONE [Concomitant]
     Route: 048
     Dates: start: 20050805
  7. HALCION [Concomitant]
     Route: 048
     Dates: start: 20050805

REACTIONS (2)
  - RENAL FAILURE [None]
  - RHABDOMYOLYSIS [None]
